FAERS Safety Report 7343305-7 (Version None)
Quarter: 2011Q1

REPORT INFORMATION
  Report Type: 
  Country: None (occurrence: None)
  Receive Date: 20110310
  Receipt Date: 20110309
  Transmission Date: 20110831
  Serious: Yes (Hospitalization, Other)
  Sender: FDA-Public Use
  Company Number: BR-ABBOTT-09P-020-0604030-00

PATIENT
  Sex: Female
  Weight: 54 kg

DRUGS (10)
  1. MESALAZINE [Concomitant]
     Route: 054
     Dates: start: 20000101
  2. MESALAZINE [Concomitant]
     Indication: CROHN'S DISEASE
     Route: 054
  3. PENTASA [Concomitant]
     Indication: CROHN'S DISEASE
     Route: 048
     Dates: start: 20100801
  4. HUMIRA [Suspect]
     Route: 058
     Dates: end: 20091201
  5. ASALIT [Concomitant]
     Indication: CROHN'S DISEASE
     Dates: start: 19950101
  6. METICORTEN [Concomitant]
     Indication: INFLAMMATION
     Route: 048
     Dates: start: 20000101
  7. PREDNISONE TAB [Concomitant]
     Indication: CROHN'S DISEASE
     Route: 048
  8. HUMIRA [Suspect]
     Indication: CROHN'S DISEASE
     Dosage: INDUCTION DOSE: INDUCTION DOSE: 160MG
     Route: 058
     Dates: start: 20090201, end: 20090201
  9. HUMIRA [Suspect]
     Dosage: INDUCTION DOSE: 80 MG
     Route: 058
  10. HUMIRA [Suspect]
     Route: 058
     Dates: start: 20100201

REACTIONS (7)
  - PROCTALGIA [None]
  - PROCTITIS [None]
  - DIARRHOEA [None]
  - DRUG DOSE OMISSION [None]
  - INJECTION SITE PAIN [None]
  - DIARRHOEA HAEMORRHAGIC [None]
  - HAEMATOCHEZIA [None]
